FAERS Safety Report 19613614 (Version 1)
Quarter: 2021Q3

REPORT INFORMATION
  Report Type: Spontaneous
  Country: CA (occurrence: CA)
  Receive Date: 20210727
  Receipt Date: 20210727
  Transmission Date: 20211014
  Serious: Yes (Other)
  Sender: FDA-Public Use
  Company Number: CA-TEVA-2021-CA-1934756

PATIENT
  Age: 69 Year
  Sex: Female
  Weight: 77 kg

DRUGS (17)
  1. PREDNISONE. [Concomitant]
     Active Substance: PREDNISONE
     Route: 065
  2. SEPTRA [Concomitant]
     Active Substance: SULFAMETHOXAZOLE\TRIMETHOPRIM
     Indication: PROPHYLAXIS
     Route: 065
  3. LEUCOVORIN. [Concomitant]
     Active Substance: LEUCOVORIN
     Indication: PRODUCT USED FOR UNKNOWN INDICATION
     Route: 065
  4. VENTOLIN [Concomitant]
     Active Substance: ALBUTEROL SULFATE
     Indication: ASTHMA
  5. BETAMETHASONE. [Concomitant]
     Active Substance: BETAMETHASONE
     Route: 065
  6. PROCYTOX [Suspect]
     Active Substance: CYCLOPHOSPHAMIDE
     Indication: PRODUCT USED FOR UNKNOWN INDICATION
     Route: 042
  7. ALVESCO [Concomitant]
     Active Substance: CICLESONIDE
     Indication: ASTHMA
     Dosage: 400 MICROGRAM DAILY;
  8. BETAMETHASONE. [Concomitant]
     Active Substance: BETAMETHASONE
     Indication: ECZEMA
     Route: 065
  9. EBASTINE [Concomitant]
     Active Substance: EBASTINE
     Indication: HYPERSENSITIVITY
     Route: 065
  10. HYDROCORTISONE. [Concomitant]
     Active Substance: HYDROCORTISONE
     Indication: ROSACEA
     Route: 065
  11. PREDNISONE. [Concomitant]
     Active Substance: PREDNISONE
     Route: 065
  12. BENADRYL [Concomitant]
     Active Substance: DIPHENHYDRAMINE HYDROCHLORIDE
     Indication: HYPERSENSITIVITY
     Route: 065
  13. METHOTREXATE. [Suspect]
     Active Substance: METHOTREXATE
     Indication: PRODUCT USED FOR UNKNOWN INDICATION
     Route: 058
  14. PREDNISONE. [Concomitant]
     Active Substance: PREDNISONE
     Indication: VASCULITIS
     Route: 065
  15. PREDNISONE. [Concomitant]
     Active Substance: PREDNISONE
     Route: 065
  16. VITAMIN D [Concomitant]
     Active Substance: VITAMIN D NOS
     Indication: BONE DENSITY ABNORMAL
     Route: 065
  17. PANTOPRAZOLE MAGNESIUM [Concomitant]
     Active Substance: PANTOPRAZOLE MAGNESIUM
     Indication: PROPHYLAXIS
     Dosage: 40 MILLIGRAM DAILY;
     Route: 065

REACTIONS (48)
  - Asthma [Unknown]
  - Condition aggravated [Unknown]
  - Dyspnoea [Unknown]
  - Pruritus [Unknown]
  - Somnolence [Unknown]
  - Alopecia [Unknown]
  - Cold sweat [Unknown]
  - Contusion [Unknown]
  - Diplopia [Unknown]
  - Feeling abnormal [Unknown]
  - Poor quality sleep [Unknown]
  - Contraindication to medical treatment [Unknown]
  - Blindness [Unknown]
  - Constipation [Unknown]
  - Diarrhoea [Unknown]
  - Disturbance in attention [Unknown]
  - Headache [Unknown]
  - Rash [Unknown]
  - Eye pain [Unknown]
  - Jaundice [Unknown]
  - Sneezing [Unknown]
  - Swelling [Unknown]
  - Aphasia [Unknown]
  - Gastrointestinal disorder [Unknown]
  - Mouth ulceration [Unknown]
  - Rosacea [Unknown]
  - Vision blurred [Unknown]
  - Cough [Unknown]
  - Epistaxis [Unknown]
  - Loss of consciousness [Unknown]
  - Muscle spasms [Unknown]
  - Musculoskeletal stiffness [Unknown]
  - Pain [Unknown]
  - Pyrexia [Unknown]
  - Renal pain [Unknown]
  - Drug intolerance [Unknown]
  - Abdominal distension [Unknown]
  - Abdominal pain upper [Unknown]
  - Fatigue [Unknown]
  - Mood swings [Unknown]
  - Nausea [Unknown]
  - Night sweats [Unknown]
  - Urticaria [Unknown]
  - Drug hypersensitivity [Unknown]
  - Eczema [Unknown]
  - Rhinorrhoea [Unknown]
  - Vitreous floaters [Unknown]
  - Treatment failure [Unknown]
